FAERS Safety Report 5087206-6 (Version None)
Quarter: 2006Q3

REPORT INFORMATION
  Report Type: 
  Country: None (occurrence: None)
  Receive Date: 20060821
  Receipt Date: 20060810
  Transmission Date: 20061208
  Serious: Yes (Death)
  Sender: FDA-Public Use
  Company Number: MEDI-0004693

PATIENT
  Age: 57 Year
  Sex: Male

DRUGS (3)
  1. ETHYOL [Suspect]
     Indication: DRY MOUTH
     Dosage: 375 MG, 1 IN 1 D, INTRAVENOUS (NOT
     Route: 042
     Dates: start: 20020323, end: 20020408
  2. RADIATION THERAPY [Concomitant]
  3. CISPLATIN [Concomitant]

REACTIONS (3)
  - HYPERPYREXIA [None]
  - MALIGNANT NEOPLASM PROGRESSION [None]
  - METASTASES TO LIVER [None]
